FAERS Safety Report 6914611-2 (Version None)
Quarter: 2010Q3

REPORT INFORMATION
  Report Type: 
  Country: None (occurrence: None)
  Receive Date: 20100804
  Receipt Date: 20100804
  Transmission Date: 20110219
  Serious: Yes (Other)
  Sender: FDA-Public Use
  Company Number: None

PATIENT
  Age: 70 Year
  Sex: Male
  Weight: 86.4 kg

DRUGS (1)
  1. CLONAZEPAM [Suspect]
     Indication: INSOMNIA
     Dosage: 1 DAY
     Dates: start: 20090101, end: 20100101

REACTIONS (2)
  - HOSTILITY [None]
  - PRODUCT LABEL ISSUE [None]
